FAERS Safety Report 15163660 (Version 4)
Quarter: 2018Q3

REPORT INFORMATION
  Report Type: Report from Study
  Country: CA (occurrence: CA)
  Receive Date: 20180719
  Receipt Date: 20180925
  Transmission Date: 20181010
  Serious: Yes (Other)
  Sender: FDA-Public Use
  Company Number: CA-ROCHE-2143196

PATIENT
  Age: 64 Year
  Sex: Male

DRUGS (7)
  1. XARELTO [Concomitant]
     Active Substance: RIVAROXABAN
  2. NYSTATIN. [Concomitant]
     Active Substance: NYSTATIN
  3. ESBRIET [Suspect]
     Active Substance: PIRFENIDONE
     Indication: IDIOPATHIC PULMONARY FIBROSIS
     Dosage: 1 TABLET 3 TIMES A DAY
     Route: 048
     Dates: start: 20180326
  4. ESBRIET [Suspect]
     Active Substance: PIRFENIDONE
     Dosage: 1 TABLET 3 TIMES A DAY
     Route: 048
     Dates: start: 20180730
  5. LACTAID [Concomitant]
     Active Substance: LACTASE
  6. PREDNISONE. [Concomitant]
     Active Substance: PREDNISONE
     Dosage: 6 DAYS LEFT (13MARCH2018)
     Route: 065
  7. TARO?CLOBETASOL [Concomitant]
     Active Substance: CLOBETASOL

REACTIONS (5)
  - Sunburn [Unknown]
  - Diarrhoea [Recovered/Resolved]
  - Psoriasis [Not Recovered/Not Resolved]
  - Diarrhoea [Not Recovered/Not Resolved]
  - Diarrhoea [Recovered/Resolved]

NARRATIVE: CASE EVENT DATE: 20180604
